FAERS Safety Report 24145742 (Version 1)
Quarter: 2024Q3

REPORT INFORMATION
  Report Type: Spontaneous
  Country: ES (occurrence: ES)
  Receive Date: 20240729
  Receipt Date: 20240729
  Transmission Date: 20241017
  Serious: Yes (Other)
  Sender: HETERO
  Company Number: None

PATIENT
  Age: 90 Year
  Sex: Male
  Weight: 53 kg

DRUGS (3)
  1. LEVETIRACETAM [Suspect]
     Active Substance: LEVETIRACETAM
     Indication: Myoclonus
     Dosage: STARTED ON 06/11 WITH A LOAD OF 2000, IN A SINGLE DOSE
     Route: 048
     Dates: start: 20240611, end: 20240611
  2. LEVETIRACETAM [Suspect]
     Active Substance: LEVETIRACETAM
     Dosage: STARTED ON 06/13 WITH 1500 MILLIGRAM IN A SINGLE DOSE
     Route: 048
     Dates: start: 20240613, end: 20240613
  3. LEVETIRACETAM [Suspect]
     Active Substance: LEVETIRACETAM
     Dosage: 500 MILLIGRAM EVERY 12 HOUR
     Route: 048
     Dates: start: 20240614

REACTIONS (1)
  - Mixed liver injury [Recovering/Resolving]

NARRATIVE: CASE EVENT DATE: 20240614
